FAERS Safety Report 10186692 (Version 1)
Quarter: 2014Q2

REPORT INFORMATION
  Report Type: Spontaneous
  Country: ES (occurrence: ES)
  Receive Date: 20140521
  Receipt Date: 20140521
  Transmission Date: 20141212
  Serious: Yes (Other)
  Sender: FDA-Public Use
  Company Number: ES-MYLANLABS-2014S1011093

PATIENT
  Age: 55 Year
  Sex: Female

DRUGS (2)
  1. METHOTREXATE [Suspect]
     Indication: MYCOSIS FUNGOIDES
     Dosage: 25MG/WEEK
     Route: 065
  2. COTRIMOXAZOLE [Interacting]
     Indication: PROPHYLAXIS
     Dosage: 800MG SULFAMETHOXAZOLE/160MG TRIMETHOPRIM 3 TIMES A WEEK
     Route: 065

REACTIONS (4)
  - Toxicity to various agents [Recovered/Resolved]
  - Drug interaction [Recovering/Resolving]
  - Bone marrow failure [Unknown]
  - Skin erosion [Recovered/Resolved]
